FAERS Safety Report 4707057-9 (Version None)
Quarter: 2005Q2

REPORT INFORMATION
  Report Type: 
  Country: None (occurrence: None)
  Receive Date: 20050113
  Receipt Date: 20050113
  Transmission Date: 20051028
  Serious: No
  Sender: FDA-Public Use
  Company Number: None

PATIENT
  Sex: Male
  Weight: 22.3623 kg

DRUGS (2)
  1. RITALIN-SR [Suspect]
     Indication: ATTENTION DEFICIT/HYPERACTIVITY DISORDER
     Dosage: 40 MG Q AM; 30 MG @ NOON; 10 MG AFTER SCHOOL
  2. RITALIN-SR [Suspect]
     Indication: NEGATIVISM
     Dosage: 40 MG Q AM; 30 MG @ NOON; 10 MG AFTER SCHOOL

REACTIONS (3)
  - ABNORMAL BEHAVIOUR [None]
  - DRUG EFFECT DECREASED [None]
  - THERAPEUTIC RESPONSE UNEXPECTED WITH DRUG SUBSTITUTION [None]
